FAERS Safety Report 5704716-6 (Version None)
Quarter: 2008Q2

REPORT INFORMATION
  Report Type: 
  Country: None (occurrence: None)
  Receive Date: 20080414
  Receipt Date: 20080403
  Transmission Date: 20081010
  Serious: Yes (Death)
  Sender: FDA-Public Use
  Company Number: JP-JNJFOC-20080105417

PATIENT
  Sex: Female
  Weight: 31 kg

DRUGS (11)
  1. RISPERDAL [Suspect]
     Indication: SCHIZOPHRENIA, PARANOID TYPE
     Route: 048
  2. RISPERIDONE QUICKLET [Suspect]
     Route: 048
  3. RISPERIDONE QUICKLET [Suspect]
     Indication: SCHIZOPHRENIA, PARANOID TYPE
     Route: 048
  4. BROTIZOLAM [Concomitant]
     Route: 048
  5. ETIZOLAM [Concomitant]
     Route: 048
  6. DIMETICONE [Concomitant]
     Indication: GASTROENTERITIS
     Route: 048
  7. MOSAPRIDE [Concomitant]
     Indication: GASTROENTERITIS
     Route: 048
  8. JUVELA [Concomitant]
     Indication: PERIPHERAL CIRCULATORY FAILURE
     Route: 048
  9. FERROMIA [Concomitant]
     Indication: ANAEMIA
     Route: 048
  10. POTASSIUM L-ASPARTATE [Concomitant]
     Indication: HYPOKALAEMIA
     Route: 048
  11. SENNOSIDE [Concomitant]
     Indication: CONSTIPATION
     Route: 048

REACTIONS (3)
  - CARDIAC FAILURE [None]
  - MYOCARDIAL INFARCTION [None]
  - PNEUMONIA [None]
